FAERS Safety Report 8425649-0 (Version None)
Quarter: 2012Q2

REPORT INFORMATION
  Report Type: 
  Country: None (occurrence: None)
  Receive Date: 20120611
  Receipt Date: 20120605
  Transmission Date: 20120825
  Serious: Yes (Other)
  Sender: FDA-Public Use
  Company Number: PHHY2012CA016175

PATIENT
  Sex: Female

DRUGS (1)
  1. GILENYA [Suspect]
     Indication: RELAPSING-REMITTING MULTIPLE SCLEROSIS
     Dosage: 0.5 MG, QD
     Route: 048
     Dates: start: 20120131

REACTIONS (6)
  - GINGIVAL INFECTION [None]
  - OROPHARYNGEAL PAIN [None]
  - ERYTHEMA [None]
  - COUGH [None]
  - MUCOSAL INFECTION [None]
  - ENANTHEMA [None]
